FAERS Safety Report 7964966-5 (Version None)
Quarter: 2011Q4

REPORT INFORMATION
  Report Type: 
  Country: None (occurrence: None)
  Receive Date: 20111206
  Receipt Date: 20111206
  Transmission Date: 20120403
  Serious: Yes (Hospitalization)
  Sender: FDA-Public Use
  Company Number: None

PATIENT
  Sex: Male
  Weight: 63 kg

DRUGS (7)
  1. AVASTIN [Suspect]
     Indication: OESOPHAGEAL CARCINOMA
     Dosage: 5 MG/KG, Q 2 WEEKS, IV
     Route: 042
     Dates: start: 20110622, end: 20110803
  2. REGLAN [Concomitant]
  3. ZOFRAN [Concomitant]
  4. FOLFOX Q 2 WEEKS NEOADJUVANT [Suspect]
     Indication: OESOPHAGEAL CARCINOMA
     Dosage: SEE IMAGE
     Dates: start: 20110622, end: 20110817
  5. COMPAZINE [Concomitant]
  6. OXYCODONE HCL [Concomitant]
  7. OMEPRAZOLE [Concomitant]

REACTIONS (3)
  - NAUSEA [None]
  - RETCHING [None]
  - VOMITING [None]
